FAERS Safety Report 18179908 (Version 4)
Quarter: 2021Q4

REPORT INFORMATION
  Report Type: Spontaneous
  Country: US (occurrence: US)
  Receive Date: 20200821
  Receipt Date: 20211029
  Transmission Date: 20220303
  Serious: Yes (Hospitalization, Other)
  Sender: FDA-Public Use
  Company Number: US-SA-2020SA222629

PATIENT
  Sex: Female

DRUGS (24)
  1. DUPIXENT [Suspect]
     Active Substance: DUPILUMAB
     Indication: Dermatitis atopic
     Dosage: 300 MG, QOW
     Route: 058
     Dates: start: 2017
  2. VANCOMYCIN [Suspect]
     Active Substance: VANCOMYCIN
     Indication: Peripheral swelling
  3. VANCOMYCIN [Suspect]
     Active Substance: VANCOMYCIN
  4. THIAMINE HYDROCHLORIDE [Concomitant]
     Active Substance: THIAMINE HYDROCHLORIDE
     Dosage: 100MG
  5. TRIAMCINOLONE ACETONIDE [Concomitant]
     Active Substance: TRIAMCINOLONE ACETONIDE
  6. PROCHLORPERAZINE MALEATE [Concomitant]
     Active Substance: PROCHLORPERAZINE MALEATE
  7. VITAMIN B6 [Concomitant]
     Active Substance: PYRIDOXINE HYDROCHLORIDE
  8. ZINC [Concomitant]
     Active Substance: ZINC
  9. CALCIUM\CHOLECALCIFEROL [Concomitant]
     Active Substance: CALCIUM\CHOLECALCIFEROL
     Dosage: 600MG-12.5 TABLET ER
  10. BIOTIN [Concomitant]
     Active Substance: BIOTIN
  11. MINERALS\VITAMINS [Concomitant]
     Active Substance: MINERALS\VITAMINS
  12. IRON;VITAMIN C [Concomitant]
  13. CICLOPIROX [Concomitant]
     Active Substance: CICLOPIROX
  14. MIRTAZAPINE [Concomitant]
     Active Substance: MIRTAZAPINE
  15. PANTOPRAZOLE SODIUM [Concomitant]
     Active Substance: PANTOPRAZOLE SODIUM
  16. PREGABALIN [Concomitant]
     Active Substance: PREGABALIN
  17. HYDROXYZINE HYDROCHLORIDE [Concomitant]
     Active Substance: HYDROXYZINE HYDROCHLORIDE
  18. OXYCODONE HYDROCHLORIDE [Concomitant]
     Active Substance: OXYCODONE HYDROCHLORIDE
  19. OMEPRAZOLE [Concomitant]
     Active Substance: OMEPRAZOLE
  20. ACETAMINOPHEN\HYDROCODONE [Concomitant]
     Active Substance: ACETAMINOPHEN\HYDROCODONE
  21. CYANOCOBALAMIN [Concomitant]
     Active Substance: CYANOCOBALAMIN
  22. TIZANIDINE HYDROCHLORIDE [Concomitant]
     Active Substance: TIZANIDINE HYDROCHLORIDE
  23. SPIRONOLACTONE [Concomitant]
     Active Substance: SPIRONOLACTONE
  24. FUROSEMIDE [Concomitant]
     Active Substance: FUROSEMIDE

REACTIONS (11)
  - Hospitalisation [Unknown]
  - Spinal operation [Unknown]
  - Drug-induced liver injury [Unknown]
  - Pain in extremity [Unknown]
  - Localised infection [Unknown]
  - Peripheral swelling [Unknown]
  - Skin fissures [Unknown]
  - Neck pain [Unknown]
  - Nephropathy toxic [Unknown]
  - Skin weeping [Unknown]
  - Product dose omission issue [Unknown]
